FAERS Safety Report 7141884-6 (Version None)
Quarter: 2010Q4

REPORT INFORMATION
  Report Type: 
  Country: None (occurrence: None)
  Receive Date: 20101207
  Receipt Date: 20101126
  Transmission Date: 20110411
  Serious: Yes (Hospitalization, Disabling, Other)
  Sender: FDA-Public Use
  Company Number: FR-BAXTER-2010BH020045

PATIENT
  Age: 65 Year
  Sex: Male

DRUGS (15)
  1. HOLOXAN BAXTER [Suspect]
     Indication: BONE SARCOMA
     Route: 042
     Dates: start: 20081114, end: 20081115
  2. HOLOXAN BAXTER [Suspect]
     Route: 042
     Dates: start: 20081008, end: 20081009
  3. HOLOXAN BAXTER [Suspect]
     Route: 042
     Dates: start: 20080825, end: 20080826
  4. HOLOXAN BAXTER [Suspect]
     Route: 042
     Dates: start: 20080805, end: 20080806
  5. UROMITEXAN BAXTER [Suspect]
     Indication: BONE SARCOMA
     Route: 042
     Dates: start: 20081114, end: 20081115
  6. UROMITEXAN BAXTER [Suspect]
     Route: 042
     Dates: start: 20081008, end: 20081009
  7. UROMITEXAN BAXTER [Suspect]
     Route: 042
     Dates: start: 20080825, end: 20080826
  8. UROMITEXAN BAXTER [Suspect]
     Route: 042
     Dates: start: 20080805, end: 20080806
  9. CISPLATIN [Suspect]
     Indication: BONE SARCOMA
     Route: 042
     Dates: start: 20081113, end: 20081113
  10. CISPLATIN [Suspect]
     Route: 042
     Dates: start: 20080804, end: 20080804
  11. DOXORUBICIN GENERIC [Suspect]
     Indication: BONE SARCOMA
     Route: 042
     Dates: start: 20081113, end: 20081113
  12. DOXORUBICIN GENERIC [Suspect]
     Route: 042
     Dates: start: 20080825, end: 20080825
  13. DOXORUBICIN GENERIC [Suspect]
     Route: 042
     Dates: start: 20080804, end: 20080804
  14. ZOPHREN [Concomitant]
     Indication: PRODUCT USED FOR UNKNOWN INDICATION
     Route: 042
     Dates: start: 20080804, end: 20081115
  15. METHYLPREDNISOLONE [Concomitant]
     Indication: PRODUCT USED FOR UNKNOWN INDICATION
     Route: 042
     Dates: start: 20080804, end: 20081115

REACTIONS (12)
  - ATRIAL FIBRILLATION [None]
  - FEBRILE BONE MARROW APLASIA [None]
  - FUNGAL INFECTION [None]
  - GASTRITIS [None]
  - MUCOSAL INFLAMMATION [None]
  - NAUSEA [None]
  - NEUROPATHY PERIPHERAL [None]
  - RENAL FAILURE ACUTE [None]
  - RENAL FAILURE CHRONIC [None]
  - SEPSIS [None]
  - THROMBOCYTOPENIA [None]
  - VOMITING [None]
